FAERS Safety Report 12900730 (Version 1)
Quarter: 2016Q4

REPORT INFORMATION
  Report Type: Report from Study
  Country: ES (occurrence: ES)
  Receive Date: 20161101
  Receipt Date: 20161101
  Transmission Date: 20170207
  Serious: Yes (Hospitalization)
  Sender: FDA-Public Use
  Company Number: ES-AMGEN-ESPNI2016148448

PATIENT
  Age: 75 Year
  Sex: Female
  Weight: 50 kg

DRUGS (2)
  1. PANITUMUMAB [Suspect]
     Active Substance: PANITUMUMAB
     Dosage: 250 MG, Q2WK
     Route: 042
     Dates: start: 20160907
  2. PANITUMUMAB [Suspect]
     Active Substance: PANITUMUMAB
     Indication: COLORECTAL ADENOCARCINOMA
     Dosage: 312 MG, Q2WK
     Route: 042
     Dates: start: 20160824, end: 20160824

REACTIONS (2)
  - Gastrointestinal toxicity [Recovering/Resolving]
  - Mucosal inflammation [Recovered/Resolved]

NARRATIVE: CASE EVENT DATE: 20161018
